FAERS Safety Report 18019709 (Version 1)
Quarter: 2020Q3

REPORT INFORMATION
  Report Type: Spontaneous
  Country: US (occurrence: US)
  Receive Date: 20200714
  Receipt Date: 20200714
  Transmission Date: 20201103
  Serious: Yes (Hospitalization, Other)
  Sender: FDA-Public Use
  Company Number: US-HIKMA PHARMACEUTICALS USA INC.-US-H14001-20-51718

PATIENT
  Age: 55 Year
  Sex: Male

DRUGS (3)
  1. GENVOYA [Interacting]
     Active Substance: COBICISTAT\ELVITEGRAVIR\EMTRICITABINE\TENOFOVIR ALAFENAMIDE FUMARATE
     Indication: HIV INFECTION
     Route: 065
  2. TRIAMCINOLONE ACETONIDE ? INJECTION [Interacting]
     Active Substance: TRIAMCINOLONE ACETONIDE
     Indication: SYNOVIAL CYST
     Route: 014
  3. FLUTICASONE PROPIONATE. [Suspect]
     Active Substance: FLUTICASONE PROPIONATE
     Indication: NASAL CONGESTION
     Route: 065

REACTIONS (7)
  - Deep vein thrombosis [Recovering/Resolving]
  - Localised infection [Recovering/Resolving]
  - Pulmonary embolism [Recovering/Resolving]
  - Drug interaction [Recovering/Resolving]
  - Cushing^s syndrome [Recovering/Resolving]
  - Hypothalamic pituitary adrenal axis suppression [Recovering/Resolving]
  - Ulcer [Recovering/Resolving]
